FAERS Safety Report 4941005-1 (Version None)
Quarter: 2006Q1

REPORT INFORMATION
  Report Type: 
  Country: None (occurrence: None)
  Receive Date: 20060313
  Receipt Date: 20060209
  Transmission Date: 20060701
  Serious: Yes (Death, Other)
  Sender: FDA-Public Use
  Company Number: PHBS2006JP02197

PATIENT
  Age: 26 Year
  Sex: Female
  Weight: 52 kg

DRUGS (11)
  1. NEORAL [Suspect]
     Indication: NEPHROTIC SYNDROME
     Dosage: 100 MG/D
     Route: 048
     Dates: start: 20060201
  2. ONEALFA [Concomitant]
     Dosage: 0.5 UG/D
     Route: 048
     Dates: start: 20051219, end: 20060204
  3. LIPOVAS [Suspect]
     Indication: HYPERLIPIDAEMIA
     Dosage: 10 MG/D
     Route: 048
     Dates: start: 20060131, end: 20060204
  4. WARFARIN [Concomitant]
     Dosage: 5 MG/D
     Route: 048
     Dates: start: 20051213, end: 20060204
  5. OMEPRAL [Concomitant]
     Route: 048
  6. LASIX [Concomitant]
     Dosage: 30 MG/D
     Route: 048
     Dates: start: 20051221, end: 20060207
  7. GASCON [Concomitant]
     Dosage: 40 MG/D
     Route: 048
     Dates: start: 20060104, end: 20060204
  8. CRESTOR [Concomitant]
     Dosage: 2.5 MG/D
     Route: 048
     Dates: start: 20060107, end: 20060131
  9. SOLU-MEDROL [Concomitant]
     Dosage: 1000-500 MG/D
     Route: 042
     Dates: start: 20051212, end: 20051231
  10. PREDNISOLONE [Concomitant]
     Dosage: 30 MG/D
     Route: 048
     Dates: start: 20051216, end: 20051228
  11. MEDROL [Concomitant]
     Dosage: 24 MG/D
     Route: 048
     Dates: start: 20060101, end: 20060207

REACTIONS (24)
  - ABDOMINAL PAIN [None]
  - ALANINE AMINOTRANSFERASE INCREASED [None]
  - ANAEMIA [None]
  - ASPARTATE AMINOTRANSFERASE INCREASED [None]
  - BLOOD ALKALINE PHOSPHATASE INCREASED [None]
  - BLOOD BILIRUBIN INCREASED [None]
  - BLOOD LACTATE DEHYDROGENASE INCREASED [None]
  - BLOOD PRESSURE DECREASED [None]
  - CARDIAC ARREST [None]
  - HAEMATOCRIT DECREASED [None]
  - HAEMODIALYSIS [None]
  - HAEMOGLOBIN DECREASED [None]
  - HEPATITIS FULMINANT [None]
  - HEPATOMEGALY [None]
  - INTUBATION [None]
  - NEPHROTIC SYNDROME [None]
  - NEUTROPHIL COUNT INCREASED [None]
  - PLATELET COUNT DECREASED [None]
  - PLEURAL EFFUSION [None]
  - PROTHROMBIN TIME PROLONGED [None]
  - RED BLOOD CELL COUNT DECREASED [None]
  - RESPIRATORY FAILURE [None]
  - SHOCK [None]
  - WHITE BLOOD CELL COUNT INCREASED [None]
